FAERS Safety Report 12519088 (Version 3)
Quarter: 2017Q2

REPORT INFORMATION
  Report Type: Report from Study
  Country: US (occurrence: US)
  Receive Date: 20160630
  Receipt Date: 20170405
  Transmission Date: 20170830
  Serious: Yes (Hospitalization)
  Sender: FDA-Public Use
  Company Number: US-ACTELION-A-US2016-138321

PATIENT
  Age: 46 Year
  Sex: Female

DRUGS (3)
  1. SILDENAFIL CITRATE. [Concomitant]
     Active Substance: SILDENAFIL CITRATE
  2. TRACLEER [Suspect]
     Active Substance: BOSENTAN
     Dosage: 125 MG, BID
     Route: 048
  3. TRACLEER [Suspect]
     Active Substance: BOSENTAN
     Indication: PULMONARY ARTERIAL HYPERTENSION
     Dosage: 125 MG, BID
     Route: 048
     Dates: start: 20130322

REACTIONS (9)
  - Blood pressure increased [Not Recovered/Not Resolved]
  - Drug dose omission [Unknown]
  - Catheter site swelling [Not Recovered/Not Resolved]
  - Blood glucose increased [Unknown]
  - Catheter site haemorrhage [Not Recovered/Not Resolved]
  - Viral upper respiratory tract infection [Unknown]
  - Pulmonary arterial hypertension [Unknown]
  - Oxygen saturation decreased [Unknown]
  - Catheter site pain [Not Recovered/Not Resolved]
